FAERS Safety Report 6133201-5 (Version None)
Quarter: 2009Q1

REPORT INFORMATION
  Report Type: 
  Country: None (occurrence: None)
  Receive Date: 20090324
  Receipt Date: 20090324
  Transmission Date: 20090719
  Serious: Yes (Life-Threatening)
  Sender: FDA-Public Use
  Company Number: None

PATIENT
  Sex: Male
  Weight: 85 kg

DRUGS (4)
  1. FLUDARABINE PHOSPHATE [Suspect]
     Indication: ACUTE LYMPHOCYTIC LEUKAEMIA
     Dosage: 60MG
     Dates: start: 20090313, end: 20090317
  2. THIOTEPA [Suspect]
     Dosage: 440MG
     Dates: start: 20090313, end: 20090314
  3. IRRADATION [Concomitant]
  4. ANTITHYMOCYTE GLOBULIN [Concomitant]

REACTIONS (5)
  - ANAPHYLACTOID REACTION [None]
  - BACTERIA BLOOD IDENTIFIED [None]
  - BLOOD CULTURE POSITIVE [None]
  - ESCHERICHIA INFECTION [None]
  - NEUTROPENIC COLITIS [None]
